FAERS Safety Report 20667952 (Version 1)
Quarter: 2022Q2

REPORT INFORMATION
  Report Type: Report from Study
  Country: CA (occurrence: None)
  Receive Date: 20220404
  Receipt Date: 20220404
  Transmission Date: 20220720
  Serious: Yes (Death)
  Sender: FDA-Public Use
  Company Number: 2022A133097

PATIENT
  Sex: Female

DRUGS (18)
  1. FASENRA [Suspect]
     Active Substance: BENRALIZUMAB
     Indication: Asthma
     Dosage: 30.0MG UNKNOWN
     Route: 058
     Dates: start: 20181002
  2. IRON REPLACEMENT [Concomitant]
  3. RESPIMAT [Concomitant]
  4. AMLODIPINE [Concomitant]
     Active Substance: AMLODIPINE BESYLATE
  5. MIRABEGRON [Concomitant]
     Active Substance: MIRABEGRON
  6. DULOXETINE [Concomitant]
     Active Substance: DULOXETINE
  7. SILVER SULFADIAZINE [Concomitant]
     Active Substance: SILVER SULFADIAZINE
  8. PULMICORT TURBUHALER [Concomitant]
     Active Substance: BUDESONIDE
  9. IPRATROPIUM BROMIDE [Concomitant]
     Active Substance: IPRATROPIUM BROMIDE
  10. FUROSEMIDE [Concomitant]
     Active Substance: FUROSEMIDE
  11. PRAVASTATIN [Concomitant]
     Active Substance: PRAVASTATIN
  12. VITAMIN B12 [Concomitant]
     Active Substance: CYANOCOBALAMIN
  13. LORAZEPAM [Concomitant]
     Active Substance: LORAZEPAM
  14. PREDNISONE [Concomitant]
     Active Substance: PREDNISONE
  15. ALBUTEROL [Concomitant]
     Active Substance: ALBUTEROL
  16. SPIRONOLACTONE [Concomitant]
     Active Substance: SPIRONOLACTONE
  17. LEVOTHYROXINE [Concomitant]
     Active Substance: LEVOTHYROXINE
  18. ASPIRIN [Concomitant]
     Active Substance: ASPIRIN

REACTIONS (1)
  - Death [Fatal]
